FAERS Safety Report 21325975 (Version 1)
Quarter: 2022Q3

REPORT INFORMATION
  Report Type: Other
  Country: GB (occurrence: GB)
  Receive Date: 20220913
  Receipt Date: 20220913
  Transmission Date: 20221027
  Serious: Yes (Disabling, Other)
  Sender: FDA-Public Use
  Company Number: GB-MHRA-MED-202208241307377510-SLBHW

PATIENT

DRUGS (1)
  1. FUROSEMIDE [Suspect]
     Active Substance: FUROSEMIDE
     Indication: Peripheral swelling
     Dosage: 40 MILLIGRAM, QD, IN MORNING
     Route: 065
     Dates: start: 20220516

REACTIONS (5)
  - Asthenia [Not Recovered/Not Resolved]
  - Tremor [Unknown]
  - Fall [Unknown]
  - Wrist fracture [Unknown]
  - Medication error [Unknown]

NARRATIVE: CASE EVENT DATE: 20220522
